FAERS Safety Report 21203510 (Version 2)
Quarter: 2022Q3

REPORT INFORMATION
  Report Type: Spontaneous
  Country: US (occurrence: US)
  Receive Date: 20220811
  Receipt Date: 20220829
  Transmission Date: 20221026
  Serious: Yes (Other)
  Sender: FDA-Public Use
  Company Number: US-TEVA-2022-US-2062809

PATIENT
  Age: 69 Year
  Sex: Female

DRUGS (26)
  1. CARVEDILOL [Interacting]
     Active Substance: CARVEDILOL
     Indication: Hypertension
     Dosage: 12.5 MILLIGRAM DAILY; 1 TABLET IN THE MORNING AND BEDTIME
     Route: 065
  2. DULOXETINE [Interacting]
     Active Substance: DULOXETINE
     Indication: Neuropathy peripheral
     Dosage: 60 MILLIGRAM DAILY; 1 CAPSULE IN THE MORNING
     Route: 065
  3. GABAPENTIN [Suspect]
     Active Substance: GABAPENTIN
     Indication: Neuropathy peripheral
     Dosage: 300 MILLIGRAM DAILY; 1 CAPSULE IN THE MORNING, EVENING AND BEDTIME
     Route: 065
  4. HYDROXYZINE [Interacting]
     Active Substance: HYDROXYZINE HYDROCHLORIDE
     Indication: Anxiety
     Dosage: 50 MILLIGRAM DAILY; 1 TABLET AT BEDTIME
     Route: 065
  5. PREGABALIN [Suspect]
     Active Substance: PREGABALIN
     Indication: Neuropathy peripheral
     Dosage: 300 MILLIGRAM DAILY; 1 CAPSULE IN THE MORNING AND BEDTIME
     Route: 065
  6. TRAMADOL [Interacting]
     Active Substance: TRAMADOL
     Indication: Osteoarthritis
     Dosage: 150 MILLIGRAM DAILY; 1 TABLET IN THE MORNING, EVENING, AND BEDTIME
     Route: 065
  7. AMITRIPTYLINE [Interacting]
     Active Substance: AMITRIPTYLINE
     Indication: Neuropathy peripheral
     Dosage: 75 MILLIGRAM DAILY; 1 TABLET AT BEDTIME
     Route: 065
  8. AMITRIPTYLINE [Interacting]
     Active Substance: AMITRIPTYLINE
     Route: 065
  9. AMITRIPTYLINE [Interacting]
     Active Substance: AMITRIPTYLINE
     Route: 065
  10. ATORVASTATIN [Interacting]
     Active Substance: ATORVASTATIN
     Indication: Hyperlipidaemia
     Dosage: 40 MILLIGRAM DAILY; 1 TABLET IN THE MORNING
     Route: 065
  11. OMEPRAZOLE [Interacting]
     Active Substance: OMEPRAZOLE
     Indication: Gastrooesophageal reflux disease
     Dosage: 40 MILLIGRAM DAILY; 1 TABLET IN THE MORNING
     Route: 065
  12. PHENYTOIN [Interacting]
     Active Substance: PHENYTOIN
     Indication: Epilepsy
     Dosage: 200 MILLIGRAM DAILY; 1 TABLET IN THE MORNING AND BEDTIME
     Route: 065
  13. ALPRAZOLAM [Concomitant]
     Active Substance: ALPRAZOLAM
     Indication: Anxiety
     Dosage: 1 TABLET AS NEEDED
     Route: 065
  14. DILTIAZEM [Concomitant]
     Active Substance: DILTIAZEM
     Indication: Atrial fibrillation
     Dosage: 120 MILLIGRAM DAILY; 1 TABLET IN THE MORNING
     Route: 065
  15. ASPIRIN [Concomitant]
     Active Substance: ASPIRIN
     Indication: Product used for unknown indication
     Dosage: 81 MILLIGRAM DAILY; 1 TABLET IN THE MORNING
     Route: 065
  16. APIXABAN [Concomitant]
     Active Substance: APIXABAN
     Indication: Product used for unknown indication
     Dosage: 1 TABLET IN THE MORNING AND EVENING
     Route: 065
  17. ALBUTEROL [Concomitant]
     Active Substance: ALBUTEROL
     Indication: Chronic obstructive pulmonary disease
     Dosage: 2 PUFFS EVERY 6 H AS NEEDED
     Route: 065
  18. ALBUTEROL\IPRATROPIUM [Concomitant]
     Active Substance: ALBUTEROL\IPRATROPIUM
     Indication: Chronic obstructive pulmonary disease
     Dosage: 0.5 MG-3 MG 1 VIAL VIA NEBULIZER FOUR TIMES DAILY
     Route: 065
  19. TIOTROPIUM [Concomitant]
     Active Substance: TIOTROPIUM
     Indication: Chronic obstructive pulmonary disease
     Dosage: 1.25 MCG 2 PUFFS ONCE DAILY
     Route: 065
  20. POTASSIUM CHLORIDE [Concomitant]
     Active Substance: POTASSIUM CHLORIDE
     Indication: Hypokalaemia
     Dosage: 1 TABLET IN THE MORNING
     Route: 065
  21. LEVOTHYROXINE [Concomitant]
     Active Substance: LEVOTHYROXINE
     Indication: Hypothyroidism
     Dosage: 25 MCG 1 TABLET IN THE MORNING
     Route: 065
  22. FUROSEMIDE [Concomitant]
     Active Substance: FUROSEMIDE
     Indication: Ischaemic cardiomyopathy
     Dosage: 1 TABLET ONCE DAILY
     Route: 065
  23. NITROGLYCERIN [Concomitant]
     Active Substance: NITROGLYCERIN
     Indication: Ischaemic cardiomyopathy
     Dosage: 1 TABLET EVERY 5 MIN AS NEEDED
     Route: 065
  24. SOTALOL [Concomitant]
     Active Substance: SOTALOL
     Indication: Ischaemic cardiomyopathy
     Dosage: 1 TABLET IN THE MORNING AND EVENING
     Route: 065
  25. ALENDRONATE [Concomitant]
     Active Substance: ALENDRONATE SODIUM
     Indication: Osteoporosis
     Dosage: 1 TABLET ONCE A WEEK
     Route: 065
  26. VITAMINS [Concomitant]
     Active Substance: VITAMINS
     Indication: Vitamin supplementation
     Dosage: 1 TABLET IN THE MORNING
     Route: 065

REACTIONS (6)
  - Drug interaction [Unknown]
  - Tremor [Recovering/Resolving]
  - Drug withdrawal syndrome [Unknown]
  - Drug ineffective [Unknown]
  - Therapeutic product effect decreased [Unknown]
  - Drug interaction [Unknown]
